FAERS Safety Report 8045826-0 (Version None)
Quarter: 2012Q1

REPORT INFORMATION
  Report Type: 
  Country: None (occurrence: None)
  Receive Date: 20120113
  Receipt Date: 20120111
  Transmission Date: 20120608
  Serious: Yes (Other)
  Sender: FDA-Public Use
  Company Number: ES-ROCHE-1029659

PATIENT
  Age: 64 Year
  Sex: Female

DRUGS (5)
  1. PEGASYS [Suspect]
     Indication: HEPATITIS C
     Route: 030
     Dates: start: 20111103, end: 20111203
  2. REBETOL [Suspect]
     Indication: HEPATITIS C
     Route: 048
     Dates: start: 20111103, end: 20111203
  3. LEXATIN [Concomitant]
     Route: 048
  4. LYRICA [Concomitant]
     Indication: TRIGEMINAL NEURALGIA
     Route: 048
  5. TORSEMIDE [Concomitant]
     Indication: HYPERTENSION
     Route: 048

REACTIONS (1)
  - SYNCOPE [None]
